FAERS Safety Report 7412937-X (Version None)
Quarter: 2011Q2

REPORT INFORMATION
  Report Type: 
  Country: None (occurrence: None)
  Receive Date: 20110404
  Receipt Date: 20110322
  Transmission Date: 20111010
  Serious: Yes (Other)
  Sender: FDA-Public Use
  Company Number: 029989

PATIENT
  Age: 41 Year
  Sex: Female

DRUGS (4)
  1. LOXONIN [Concomitant]
  2. ETHINYLESTRADIOL W/NOERETHISTERONE ACETATE [Concomitant]
  3. NOVAMIN [Concomitant]
  4. XYZAL [Suspect]
     Indication: SEASONAL ALLERGY
     Dosage: 5 MG, BID, ORAL
     Route: 048
     Dates: start: 20110317, end: 20110321

REACTIONS (1)
  - METRORRHAGIA [None]
